FAERS Safety Report 18198627 (Version 1)
Quarter: 2020Q3

REPORT INFORMATION
  Report Type: Spontaneous
  Country: CA (occurrence: CA)
  Receive Date: 20200826
  Receipt Date: 20200826
  Transmission Date: 20201103
  Serious: Yes (Hospitalization)
  Sender: FDA-Public Use
  Company Number: CA-MYLANLABS-2020M1074249

PATIENT
  Age: 48 Year
  Sex: Male

DRUGS (16)
  1. MORPHINE [Suspect]
     Active Substance: MORPHINE
     Indication: ANALGESIC THERAPY
     Dosage: 5 MILLIGRAM BOLUS
     Route: 008
  2. EPINEPHRINE. [Concomitant]
     Active Substance: EPINEPHRINE
     Indication: ANALGESIC THERAPY
     Dosage: 1: 200 K; THORACIC EPIDURAL INFUSION; INFUSION RATE: 16 ML/HOUR (ANALGESIA)
     Route: 008
  3. EPINEPHRINE. [Concomitant]
     Active Substance: EPINEPHRINE
     Dosage: 5 ML; BOLUS, FOLLOWING WHICH BASAL INFUSION RATE WAS INCREASED TO 20 ML/HOUR (ANALGESIA)
     Route: 008
  4. HYDROMORPHONE [Suspect]
     Active Substance: HYDROMORPHONE
     Indication: ANALGESIC THERAPY
     Dosage: 0.5 MG,BOLUS; A TOTAL DOSE OF 4.5MG OVER 5.5 HOURS (MAINTENANCE OF ANAESTHESIA)
     Route: 008
  5. HYDROMORPHONE [Suspect]
     Active Substance: HYDROMORPHONE
     Dosage: 10 MCG/ML; THORACIC EPIDURAL INFUSION; INFUSION RATE: 16 ML/HOUR (ANALGESIA)
     Route: 008
  6. HYDROMORPHONE [Suspect]
     Active Substance: HYDROMORPHONE
     Dosage: 5 ML, BOLUS, FOLLOWING WHICH BASAL INFUSION RATE WAS INCREASED TO 20 ML/HOUR (ANALGESIA)
     Route: 008
  7. HYDROMORPHONE [Suspect]
     Active Substance: HYDROMORPHONE
     Indication: ANALGESIC THERAPY
     Dosage: PATIENT CONTROLLED ANALGESIA SOLUTION OF HYDROMORPHONE...
     Route: 042
  8. BUPIVACAINE. [Concomitant]
     Active Substance: BUPIVACAINE
     Indication: MAINTENANCE OF ANAESTHESIA
     Dosage: THORACIC EPIDURAL INFUSION; INFUSION RATE: 14 ML/HOUR
     Route: 008
  9. HYDROMORPHONE [Suspect]
     Active Substance: HYDROMORPHONE
     Indication: MAINTENANCE OF ANAESTHESIA
     Dosage: 10 MCG/ML; THORACIC EPIDURAL INFUSION; INFUSION RATE: 14 ML/HOUR
     Route: 008
  10. KETAMINE [Concomitant]
     Active Substance: KETAMINE
     Indication: MAINTENANCE OF ANAESTHESIA
     Dosage: 0.3 MILLIGRAM/KILOGRAM, QH, MAINTENANCE OF ANAESTHESIA
     Route: 042
  11. KETAMINE [Concomitant]
     Active Substance: KETAMINE
     Indication: ANALGESIC THERAPY
     Dosage: PATIENT CONTROLLED ANALGESIA SOLUTION OF HYDROMORPHONE 0.5 MG/ML...
     Route: 042
  12. BUPIVACAINE. [Concomitant]
     Active Substance: BUPIVACAINE
     Dosage: 5 ML,BOLUS, FOLLOWING WHICH BASAL INFUSION RATE WAS INCREASED TO 20 ML/HOUR (ANALGESIA)
     Route: 008
  13. BUPIVACAINE. [Concomitant]
     Active Substance: BUPIVACAINE
     Indication: ANALGESIC THERAPY
     Dosage: THORACIC EPIDURAL INFUSION; INFUSION RATE: 16 ML/HOUR (ANALGESIA)
     Route: 008
  14. BUPIVACAINE. [Concomitant]
     Active Substance: BUPIVACAINE
     Indication: ANALGESIC THERAPY
     Dosage: THORACIC EPIDURAL INFUSION
     Route: 008
  15. EPINEPHRINE. [Concomitant]
     Active Substance: EPINEPHRINE
     Indication: MAINTENANCE OF ANAESTHESIA
     Dosage: 1: 200 K; THORACIC EPIDURAL INFUSION; INFUSION RATE: 14 ML/HOUR
     Route: 008
  16. DEXMEDETOMIDINE. [Concomitant]
     Active Substance: DEXMEDETOMIDINE
     Indication: ANALGESIC THERAPY
     Dosage: 1 MCG/ML; THORACIC EPIDURAL INFUSION
     Route: 008

REACTIONS (1)
  - Hyperaesthesia [Recovering/Resolving]
